FAERS Safety Report 24370454 (Version 1)
Quarter: 2024Q3

REPORT INFORMATION
  Report Type: Spontaneous
  Country: PL (occurrence: PL)
  Receive Date: 20240927
  Receipt Date: 20240927
  Transmission Date: 20241016
  Serious: Yes (Hospitalization, Disabling)
  Sender: AUROBINDO
  Company Number: PL-URPL-2-881-2019

PATIENT
  Age: 58 Year
  Sex: Male
  Weight: 92 kg

DRUGS (1)
  1. GABAPENTIN [Suspect]
     Active Substance: GABAPENTIN
     Indication: Multiple sclerosis
     Dosage: 300 MILLIGRAM, 3 TIMES A DAY
     Route: 048
     Dates: start: 20190527, end: 20190531

REACTIONS (8)
  - Balance disorder [Recovering/Resolving]
  - Body temperature increased [Recovering/Resolving]
  - Confusional state [Recovering/Resolving]
  - Dizziness [Recovering/Resolving]
  - Oedema peripheral [Recovering/Resolving]
  - Urinary incontinence [Recovering/Resolving]
  - Muscle tightness [Recovering/Resolving]
  - Headache [Recovering/Resolving]
